FAERS Safety Report 5405204-7 (Version None)
Quarter: 2007Q3

REPORT INFORMATION
  Report Type: 
  Country: None (occurrence: None)
  Receive Date: 20070803
  Receipt Date: 20070725
  Transmission Date: 20080115
  Serious: Yes (Hospitalization)
  Sender: FDA-Public Use
  Company Number: US-ELI_LILLY_AND_COMPANY-US200707006021

PATIENT
  Age: 80 Year
  Sex: Female

DRUGS (2)
  1. HUMALOG [Suspect]
     Dates: start: 20050101
  2. HUMULIN N [Suspect]
     Dates: start: 20050101, end: 20070101

REACTIONS (2)
  - CYSTITIS [None]
  - GOUT [None]
